FAERS Safety Report 4333724-5 (Version None)
Quarter: 2004Q2

REPORT INFORMATION
  Report Type: 
  Country: None (occurrence: None)
  Receive Date: 20040402
  Receipt Date: 20040323
  Transmission Date: 20050107
  Serious: Yes (Hospitalization, Disabling, Other)
  Sender: FDA-Public Use
  Company Number: 2004018588

PATIENT
  Age: 42 Year
  Sex: Male

DRUGS (2)
  1. VIAGRA [Suspect]
     Indication: ERECTILE DYSFUNCTION
     Dosage: 100 MG (PRN), ORAL  ONCE
     Route: 048
  2. ANTIDEPRESSANTS [Concomitant]

REACTIONS (2)
  - ISCHAEMIC CEREBRAL INFARCTION [None]
  - MEDICATION ERROR [None]
